FAERS Safety Report 21535931 (Version 2)
Quarter: 2022Q4

REPORT INFORMATION
  Report Type: Report from Study
  Country: US (occurrence: US)
  Receive Date: 20221101
  Receipt Date: 20221104
  Transmission Date: 20230113
  Serious: No
  Sender: FDA-Public Use
  Company Number: US-NOVARTISTESTPH-NVSC2022US245416

PATIENT
  Sex: Female

DRUGS (2)
  1. ENTRESTO [Suspect]
     Active Substance: SACUBITRIL\VALSARTAN
     Indication: Swelling
     Dosage: 1 DOSAGE FORM, BID
     Route: 048
     Dates: start: 20220720, end: 20221025
  2. XARELTO [Concomitant]
     Active Substance: RIVAROXABAN
     Indication: Product used for unknown indication
     Dosage: UNK (BEGAN PRIOR TO ENTRESTO)
     Route: 065

REACTIONS (4)
  - Abdominal distension [Unknown]
  - Peripheral swelling [Recovering/Resolving]
  - Product dose omission issue [Unknown]
  - Product use in unapproved indication [Unknown]
